FAERS Safety Report 12093719 (Version 1)
Quarter: 2016Q1

REPORT INFORMATION
  Report Type: Spontaneous
  Country: US (occurrence: None)
  Receive Date: 20160218
  Receipt Date: 20160218
  Transmission Date: 20160526
  Serious: Yes (Life-Threatening, Hospitalization)
  Sender: FDA-Public Use
  Company Number: None

PATIENT
  Age: 43 Year
  Sex: Female
  Weight: 54.4 kg

DRUGS (13)
  1. MARCAINE [Suspect]
     Active Substance: BUPIVACAINE HYDROCHLORIDE
     Indication: NERVE BLOCK
     Dosage: PRN/AS NEEDED  NERVE BLOCK
     Dates: start: 20160216, end: 20160216
  2. SUMATRIPTAN SUCCINATE (IMITREX) [Concomitant]
  3. ALPRAZOLAM. [Concomitant]
     Active Substance: ALPRAZOLAM
  4. GABAPENTIN. [Concomitant]
     Active Substance: GABAPENTIN
  5. NORCO [Concomitant]
     Active Substance: ACETAMINOPHEN\HYDROCODONE BITARTRATE
  6. TIZANIDINE. [Concomitant]
     Active Substance: TIZANIDINE
  7. SERTRALINE [Concomitant]
     Active Substance: SERTRALINE HYDROCHLORIDE
  8. IBUPROFEN. [Concomitant]
     Active Substance: IBUPROFEN
  9. VALACYCLOVIR [Concomitant]
     Active Substance: VALACYCLOVIR HYDROCHLORIDE
  10. ACTIVE ERGOCALCIFEROL (VITAMIN D2) [Concomitant]
  11. ACTIVE NITROFURANTOIN MONOHYD/M-CRYSTALS (MACROBID) [Concomitant]
  12. ACETAMINOPHEN. [Concomitant]
     Active Substance: ACETAMINOPHEN
  13. ZOFRAN ODT [Concomitant]
     Active Substance: ONDANSETRON HYDROCHLORIDE

REACTIONS (4)
  - Dyskinesia [None]
  - Cardiac arrest [None]
  - Unresponsive to stimuli [None]
  - Pulseless electrical activity [None]

NARRATIVE: CASE EVENT DATE: 20160216
